FAERS Safety Report 24979365 (Version 2)
Quarter: 2025Q2

REPORT INFORMATION
  Report Type: Spontaneous
  Country: US (occurrence: US)
  Receive Date: 20250218
  Receipt Date: 20250404
  Transmission Date: 20250717
  Serious: Yes (Other)
  Sender: NOVO NORDISK
  Company Number: US-NOVOPROD-1368957

PATIENT
  Age: 16 Year

DRUGS (3)
  1. SOGROYA [Suspect]
     Active Substance: SOMAPACITAN-BECO
     Indication: Growth hormone deficiency
     Route: 058
     Dates: start: 20230724
  2. SOGROYA [Suspect]
     Active Substance: SOMAPACITAN-BECO
     Route: 058
  3. SOGROYA [Suspect]
     Active Substance: SOMAPACITAN-BECO
     Dosage: 12.4 MG, QW(ADMINISTERED AS 2 INJECTIONS OF 6.2 MG)
     Route: 058
     Dates: end: 20240320

REACTIONS (2)
  - Papilloedema [Recovered/Resolved]
  - Condition aggravated [Recovered/Resolved]

NARRATIVE: CASE EVENT DATE: 20240320
